FAERS Safety Report 18333859 (Version 1)
Quarter: 2020Q4

REPORT INFORMATION
  Report Type: Spontaneous
  Country: DE (occurrence: DE)
  Receive Date: 20201001
  Receipt Date: 20201001
  Transmission Date: 20210113
  Serious: Yes (Hospitalization, Other)
  Sender: FDA-Public Use
  Company Number: DE-AUROBINDO-AUR-APL-2020-048575

PATIENT
  Age: 86 Year
  Sex: Female
  Weight: 77 kg

DRUGS (10)
  1. TARGIN [Concomitant]
     Active Substance: NALOXONE HYDROCHLORIDE\OXYCODONE HYDROCHLORIDE
     Indication: OSTEOARTHRITIS
     Dosage: FOR 15 (PRESUMABLY YEAR HOWEVER UNIT NOT STATED)
     Route: 065
  2. CORTISONE [Concomitant]
     Active Substance: CORTISONE
     Indication: PRODUCT USED FOR UNKNOWN INDICATION
     Dosage: UNK
     Route: 065
  3. TAVOR [Concomitant]
     Indication: SLEEP DISORDER
     Dosage: ONCE IN A WHILE
     Route: 065
  4. OXYCODONE HYDROCHLORIDE PROLONGED RELEASE TABLET [Suspect]
     Active Substance: OXYCODONE HYDROCHLORIDE
     Indication: PRODUCT USED FOR UNKNOWN INDICATION
     Dosage: UNK
     Route: 065
     Dates: start: 20200701
  5. TAVOR EXPIDET [Concomitant]
     Active Substance: LORAZEPAM
     Indication: SLEEP DISORDER
  6. OXYCODON HCL+NALOXON HCL 20MG+10MG [Suspect]
     Active Substance: NALOXONE HYDROCHLORIDE\OXYCODONE HYDROCHLORIDE
     Indication: PRODUCT USED FOR UNKNOWN INDICATION
     Dosage: UNK
     Route: 065
     Dates: start: 201912
  7. OXYCODON HCL BETA [Suspect]
     Active Substance: OXYCODONE HYDROCHLORIDE
     Indication: PRODUCT USED FOR UNKNOWN INDICATION
     Dosage: UNK
     Route: 065
     Dates: start: 20101201, end: 20200630
  8. TARGIN [Concomitant]
     Active Substance: NALOXONE HYDROCHLORIDE\OXYCODONE HYDROCHLORIDE
     Indication: PAIN
  9. OXYCODON HCL+NALOXON HCL 20MG+10MG [Suspect]
     Active Substance: NALOXONE HYDROCHLORIDE\OXYCODONE HYDROCHLORIDE
     Dosage: 1 DOSAGE FORM
     Route: 065
     Dates: start: 202001, end: 202006
  10. TAVOR EXPIDET [Concomitant]
     Active Substance: LORAZEPAM
     Indication: PAIN
     Dosage: IN THE EVENINGS
     Route: 065

REACTIONS (19)
  - Nasal discharge discolouration [Unknown]
  - Thrombosis [Unknown]
  - Dysphonia [Unknown]
  - Lung disorder [Unknown]
  - Restlessness [Unknown]
  - Night sweats [Unknown]
  - Dizziness [Unknown]
  - Dry mouth [Unknown]
  - Suicidal ideation [Unknown]
  - Cough [Unknown]
  - Malaise [Unknown]
  - Pain [Unknown]
  - Asthenia [Unknown]
  - Fear [Unknown]
  - Oesophageal obstruction [Unknown]
  - Discomfort [Unknown]
  - Dyspnoea [Unknown]
  - Appetite disorder [Unknown]
  - Back pain [Unknown]
